FAERS Safety Report 7081179-2 (Version None)
Quarter: 2010Q4

REPORT INFORMATION
  Report Type: 
  Country: None (occurrence: None)
  Receive Date: 20101103
  Receipt Date: 20101028
  Transmission Date: 20110411
  Serious: Yes (Disabling, Other)
  Sender: FDA-Public Use
  Company Number: BR-ABBOTT-10P-020-0659368-00

PATIENT
  Sex: Male
  Weight: 83.4 kg

DRUGS (6)
  1. HUMIRA [Suspect]
     Indication: RHEUMATOID ARTHRITIS
     Dates: start: 20091001, end: 20100701
  2. FUROSEMIDE [Concomitant]
     Indication: MUSCULOSKELETAL PAIN
     Route: 048
  3. FUROSEMIDE [Concomitant]
     Route: 048
  4. BETA 30 INJECTION [Concomitant]
     Indication: MUSCULOSKELETAL PAIN
     Route: 058
  5. INSULIN [Concomitant]
     Indication: DIABETES MELLITUS
     Dosage: PER DAY
     Route: 058
     Dates: start: 20050101
  6. PREDNISONE [Concomitant]
     Indication: RHEUMATOID ARTHRITIS

REACTIONS (6)
  - ABASIA [None]
  - BEDRIDDEN [None]
  - BLOOD TRIGLYCERIDES INCREASED [None]
  - PAIN [None]
  - RHEUMATOID ARTHRITIS [None]
  - RHEUMATOID FACTOR INCREASED [None]
